FAERS Safety Report 24913187 (Version 1)
Quarter: 2025Q1

REPORT INFORMATION
  Report Type: Spontaneous
  Country: CN (occurrence: CN)
  Receive Date: 20250201
  Receipt Date: 20250201
  Transmission Date: 20250408
  Serious: Yes (Hospitalization)
  Sender: PANACEA BIOTEC PHARMA LIMITED
  Company Number: CN-PBT-010091

PATIENT
  Age: 61 Year
  Sex: Female

DRUGS (7)
  1. TACROLIMUS [Suspect]
     Active Substance: TACROLIMUS
     Indication: Ulcerative keratitis
     Route: 065
     Dates: start: 2023, end: 2023
  2. VORICONAZOLE [Suspect]
     Active Substance: VORICONAZOLE
     Indication: Evidence based treatment
     Route: 065
     Dates: start: 2023, end: 2023
  3. GATIFLOXACIN [Suspect]
     Active Substance: GATIFLOXACIN
     Indication: Evidence based treatment
     Route: 065
     Dates: start: 2023, end: 2023
  4. PREDNISOLONE ACETATE [Suspect]
     Active Substance: PREDNISOLONE ACETATE
     Indication: Ulcerative keratitis
     Route: 065
     Dates: start: 2023, end: 2023
  5. GATIFLOXACIN [Suspect]
     Active Substance: GATIFLOXACIN
     Indication: Ulcerative keratitis
     Route: 065
  6. VORICONAZOLE [Suspect]
     Active Substance: VORICONAZOLE
     Indication: Conjunctivitis fungal
     Route: 065
     Dates: start: 2023, end: 2023
  7. VORICONAZOLE [Suspect]
     Active Substance: VORICONAZOLE
     Indication: Sporotrichosis
     Route: 065

REACTIONS (3)
  - Drug ineffective [Unknown]
  - Infection susceptibility increased [Recovered/Resolved]
  - Product use in unapproved indication [Unknown]
